FAERS Safety Report 5759175-4 (Version None)
Quarter: 2008Q2

REPORT INFORMATION
  Report Type: 
  Country: None (occurrence: None)
  Receive Date: 20080604
  Receipt Date: 20080523
  Transmission Date: 20081010
  Serious: Yes (Hospitalization, Other)
  Sender: FDA-Public Use
  Company Number: US-ELI_LILLY_AND_COMPANY-US200703006672

PATIENT
  Age: 78 Year
  Sex: Female

DRUGS (3)
  1. FORTEO [Suspect]
     Indication: OSTEOPOROSIS
     Dosage: UNK, UNK
     Dates: start: 20060101, end: 20070201
  2. FORTEO [Suspect]
     Dosage: UNK, UNK
     Dates: start: 20070401
  3. FORTEO [Suspect]
     Dates: start: 20080515

REACTIONS (5)
  - ARTHRALGIA [None]
  - COAGULOPATHY [None]
  - OEDEMA PERIPHERAL [None]
  - PAIN [None]
  - THROMBOSIS [None]
